FAERS Safety Report 11387442 (Version 1)
Quarter: 2015Q3

REPORT INFORMATION
  Report Type: Spontaneous
  Country: FR (occurrence: FR)
  Receive Date: 20150817
  Receipt Date: 20150817
  Transmission Date: 20151125
  Serious: Yes (Hospitalization)
  Sender: FDA-Public Use
  Company Number: FR-ELI_LILLY_AND_COMPANY-FR201508000807

PATIENT
  Age: 66 Year
  Sex: Male

DRUGS (5)
  1. CREON [Concomitant]
     Active Substance: PANCRELIPASE AMYLASE\PANCRELIPASE LIPASE\PANCRELIPASE PROTEASE
     Dosage: UNK, UNKNOWN
     Dates: start: 201409
  2. SMECTA                             /07327601/ [Concomitant]
     Dosage: UNK UNK, UNKNOWN
     Route: 065
     Dates: start: 201409
  3. EPIVIR [Concomitant]
     Active Substance: LAMIVUDINE
     Indication: HIV INFECTION
     Dosage: 150 MG, QD
     Route: 065
  4. GEMZAR [Suspect]
     Active Substance: GEMCITABINE HYDROCHLORIDE
     Indication: ADENOCARCINOMA PANCREAS
     Dosage: UNK, CYCLICAL
     Route: 065
     Dates: start: 201409, end: 201502
  5. ISENTRESS [Concomitant]
     Active Substance: RALTEGRAVIR POTASSIUM
     Indication: HIV INFECTION
     Dosage: 400 MG, BID
     Route: 065

REACTIONS (6)
  - Optic neuritis [Unknown]
  - Blood pressure increased [Recovered/Resolved]
  - Hallucination, visual [Recovered/Resolved]
  - Optic ischaemic neuropathy [Unknown]
  - Headache [Unknown]
  - Thrombotic microangiopathy [Recovering/Resolving]

NARRATIVE: CASE EVENT DATE: 201502
